FAERS Safety Report 18612141 (Version 1)
Quarter: 2020Q4

REPORT INFORMATION
  Report Type: Spontaneous
  Country: US (occurrence: US)
  Receive Date: 20201214
  Receipt Date: 20201214
  Transmission Date: 20210114
  Serious: Yes (Death)
  Sender: FDA-Public Use
  Company Number: None

PATIENT
  Age: 68 Year
  Sex: Male

DRUGS (1)
  1. ABIRATERONE TAB 250 MG [Suspect]
     Active Substance: ABIRATERONE
     Route: 048
     Dates: start: 202004

REACTIONS (2)
  - Neoplasm malignant [None]
  - Death [None]

NARRATIVE: CASE EVENT DATE: 20201203
